FAERS Safety Report 26076872 (Version 2)
Quarter: 2025Q4

REPORT INFORMATION
  Report Type: Report from Study
  Country: EU (occurrence: EU)
  Receive Date: 20251121
  Receipt Date: 20251230
  Transmission Date: 20260118
  Serious: Yes (Hospitalization, Other)
  Sender: PFIZER
  Company Number: AU-AstraZeneca-2023A164271

PATIENT
  Age: 74 Year
  Sex: Male
  Weight: 67 kg

DRUGS (62)
  1. CARBOPLATIN [Suspect]
     Active Substance: CARBOPLATIN
     Indication: Non-small cell lung cancer metastatic
     Dosage: 5  EVERY THREE WEEKS
     Route: 042
     Dates: start: 20230623, end: 20230623
  2. CARBOPLATIN [Suspect]
     Active Substance: CARBOPLATIN
     Indication: Breast cancer
     Dosage: 5  EVERY THREE WEEKS
     Route: 042
     Dates: start: 20230714, end: 20230714
  3. CARBOPLATIN [Suspect]
     Active Substance: CARBOPLATIN
     Dosage: 4  EVERY THREE WEEKS
     Route: 042
     Dates: start: 20230807, end: 20230807
  4. CARBOPLATIN [Suspect]
     Active Substance: CARBOPLATIN
     Dosage: 4  EVERY THREE WEEKS
     Route: 042
     Dates: start: 20230825, end: 20230825
  5. PEMBROLIZUMAB [Suspect]
     Active Substance: PEMBROLIZUMAB
     Indication: Non-small cell lung cancer metastatic
     Dosage: 200 MG, Q3W
     Route: 042
     Dates: start: 20230623, end: 20230623
  6. PEMBROLIZUMAB [Suspect]
     Active Substance: PEMBROLIZUMAB
     Dosage: 200 MG, Q3W
     Route: 042
     Dates: start: 20230714, end: 20230714
  7. PEMBROLIZUMAB [Suspect]
     Active Substance: PEMBROLIZUMAB
     Dosage: 200 MG, Q3W
     Route: 042
     Dates: start: 20230807, end: 20230807
  8. PEMBROLIZUMAB [Suspect]
     Active Substance: PEMBROLIZUMAB
     Dosage: 200 MG, Q3W
     Route: 042
     Dates: start: 20230825, end: 20230825
  9. PEMBROLIZUMAB [Suspect]
     Active Substance: PEMBROLIZUMAB
     Dosage: 200 MG, Q3W
     Route: 042
     Dates: start: 20230915, end: 20230915
  10. PEMBROLIZUMAB [Suspect]
     Active Substance: PEMBROLIZUMAB
     Dosage: 200 MG, Q3W
     Route: 042
     Dates: start: 20231005, end: 20231005
  11. DURVALUMAB [Suspect]
     Active Substance: DURVALUMAB
     Indication: Non-small cell lung cancer metastatic
     Dosage: UNK
  12. PACLITAXEL [Suspect]
     Active Substance: PACLITAXEL
     Indication: Non-small cell lung cancer metastatic
     Dosage: 200 MILLIGRAM/SQ. METER, Q3W
     Route: 042
     Dates: start: 20230623, end: 20230623
  13. PACLITAXEL [Suspect]
     Active Substance: PACLITAXEL
     Dosage: 136 MILLIGRAM/SQ. METER, Q3W
     Route: 042
     Dates: start: 20230623, end: 20230825
  14. PACLITAXEL [Suspect]
     Active Substance: PACLITAXEL
     Dosage: 200 MILLIGRAM/SQ. METER, Q3W
     Route: 042
     Dates: start: 20230714, end: 20230714
  15. PACLITAXEL [Suspect]
     Active Substance: PACLITAXEL
     Dosage: 141 MILLIGRAM/SQ. METER, Q3W
     Route: 042
     Dates: start: 20230825, end: 20230825
  16. AMYKAL [Concomitant]
     Indication: Body tinea
     Dosage: 250 MG, QD
     Dates: start: 20230516, end: 20230623
  17. EDOXABAN TOSYLATE [Concomitant]
     Active Substance: EDOXABAN TOSYLATE
     Indication: Atrial fibrillation
     Dosage: 60 MILLIGRAM, QD
     Dates: start: 20230516
  18. ERYTHROPOIETIN [Concomitant]
     Active Substance: ERYTHROPOIETIN
     Indication: Anaemia
     Dosage: 20000.00 OTHER IE EVERY WEEK
     Route: 058
     Dates: start: 20230614, end: 20231019
  19. ERYTHROPOIETIN [Concomitant]
     Active Substance: ERYTHROPOIETIN
     Dosage: 10000.00 OTHER IE EVERY WEEK
     Route: 058
     Dates: start: 20230624, end: 20230713
  20. FOLIC ACID [Concomitant]
     Active Substance: FOLIC ACID
     Indication: Prophylaxis
     Dosage: 5 MG 5 MG, QD (DAILY)
     Route: 048
     Dates: start: 20230525
  21. PREDNISOLONE [Concomitant]
     Active Substance: PREDNISOLONE
     Indication: Hypophysitis
     Dosage: 18.75 MILLIGRAM
     Dates: start: 20230716, end: 20230723
  22. PREDNISOLONE [Concomitant]
     Active Substance: PREDNISOLONE
     Dosage: 6.25 MILLIGRAM
     Dates: start: 20230727, end: 20230730
  23. PREDNISOLONE [Concomitant]
     Active Substance: PREDNISOLONE
     Dosage: 12.50 MILLIGRAM
     Dates: start: 20230724, end: 20230726
  24. IMODIUM [Concomitant]
     Active Substance: LOPERAMIDE HYDROCHLORIDE
     Indication: Diarrhoea
     Dosage: 2 MILLIGRAM, UNK, FREQUENCY: INT
     Dates: start: 20230623
  25. ZOLEDRONIC ACID [Concomitant]
     Active Substance: ZOLEDRONIC ACID
     Indication: Hypercalcaemia
     Dosage: 4.00 MILLIGRAM
     Dates: start: 20231018, end: 20231018
  26. NOVALGIN (METAMIZOLE SODIUM) [Concomitant]
     Active Substance: METAMIZOLE SODIUM
     Dosage: 500.00 MILLIGRAM
     Route: 048
     Dates: start: 20230714
  27. ALDOMIN [Concomitant]
     Indication: Fluid retention
     Dosage: 80 003 DAILY
     Dates: start: 20230814
  28. ALDOMIN [Concomitant]
     Indication: Insomnia
  29. KYTRIL [Concomitant]
     Active Substance: GRANISETRON HYDROCHLORIDE
     Indication: Nausea
     Dosage: 2 MILLIGRAM, UNK, FREQUENCY: INT
     Dates: start: 20230623
  30. RESOURCE PROTEIN [CARBOHYDRATES NOS;FATS NOS;MINERALS NOS;PROTEINS NOS [Concomitant]
     Indication: Nutritional supplementation
     Dosage: 200 ML, QD (DAILY)
     Route: 048
     Dates: start: 20230704
  31. ASPIRIN [Concomitant]
     Active Substance: ASPIRIN
     Indication: Anaemia
     Dosage: 40 003 DAILY
     Dates: start: 20230721, end: 20230813
  32. ASPIRIN [Concomitant]
     Active Substance: ASPIRIN
     Indication: Insomnia
  33. DIPHENHYDRAMINE HYDROCHLORIDE [Concomitant]
     Active Substance: DIPHENHYDRAMINE HYDROCHLORIDE
     Indication: Depression
     Dosage: 30 MILLIGRAM EVERY 3 WEEKS
     Route: 042
     Dates: start: 20230623, end: 20230825
  34. HYDROCORTISONE [Concomitant]
     Active Substance: HYDROCORTISONE
     Dosage: 30 MILLIGRAM
     Route: 048
     Dates: start: 20230731, end: 20230919
  35. ACETYLCYSTEIN HEXAL [Concomitant]
     Indication: Cough
     Dosage: UNK
     Dates: start: 20220615
  36. CEOLAT [DIMETICONE] [Concomitant]
     Indication: Diarrhoea
     Dosage: UNK
     Dates: start: 20230623
  37. ATORVASTATIN CALCIUM [Concomitant]
     Active Substance: ATORVASTATIN CALCIUM
     Indication: Insomnia
     Dosage: 20 MILLIGRAM
     Route: 048
     Dates: start: 20230912, end: 20230919
  38. ATORVASTATIN CALCIUM [Concomitant]
     Active Substance: ATORVASTATIN CALCIUM
     Indication: Cerebrovascular accident
  39. AMOXICILLIN SODIUM [Concomitant]
     Active Substance: AMOXICILLIN SODIUM
     Dosage: 2625 MG (875.00 MG 3 TIMES PER DAY)
     Route: 048
     Dates: start: 20230818, end: 20230824
  40. HYALURONIDASE [Concomitant]
     Active Substance: HYALURONIDASE
     Indication: Extravasation
     Dosage: 150.00 OTHER IE ONCE
     Route: 058
     Dates: start: 20230714, end: 20230714
  41. MIRTAZAPINE [Concomitant]
     Active Substance: MIRTAZAPINE
     Indication: Depression
     Dosage: 30 MG, QD (DAILY)
     Route: 048
     Dates: start: 20230525
  42. CEOLAT [METOCLOPRAMIDE HYDROCHLORIDE] [Concomitant]
     Indication: Hypophysitis
     Dosage: 1 MILLIGRAM, UNK
     Dates: start: 20230519
  43. CEOLAT [METOCLOPRAMIDE HYDROCHLORIDE] [Concomitant]
     Indication: Diarrhoea
  44. DEXAMETHASONE SODIUM PHOSPHATE [Concomitant]
     Active Substance: DEXAMETHASONE SODIUM PHOSPHATE
     Indication: Premedication
     Dosage: 20 MILLIGRAM EVERY 3 WEEKS
     Route: 042
     Dates: start: 20230623, end: 20230825
  45. AZITHROMYCIN DIHYDRATE [Concomitant]
     Active Substance: AZITHROMYCIN DIHYDRATE
     Indication: C-reactive protein increased
     Dosage: 500 003 DAILY
     Dates: start: 20230928, end: 20230930
  46. NETUPITANT [Concomitant]
     Active Substance: NETUPITANT
     Indication: Premedication
     Dosage: 300 MILLIGRAM, QW
     Dates: start: 20230623
  47. NETUPITANT [Concomitant]
     Active Substance: NETUPITANT
     Dosage: 300 MILLIGRAM, UNK
     Dates: start: 20230623, end: 20230825
  48. LIPEGFILGRASTIM [Concomitant]
     Active Substance: LIPEGFILGRASTIM
     Indication: Extravasation
     Dosage: 6.00 MG EVERY 3 WEEKS
     Route: 058
     Dates: start: 20230723
  49. LIPEGFILGRASTIM [Concomitant]
     Active Substance: LIPEGFILGRASTIM
     Indication: Chemotherapy
  50. VITAMIN D3 [Concomitant]
     Active Substance: CHOLECALCIFEROL
     Indication: Vitamin D deficiency
     Dosage: 30.00 GTT DAILY
     Route: 048
     Dates: start: 20230715, end: 20231019
  51. DESLORATADINE [Concomitant]
     Active Substance: DESLORATADINE
     Dosage: FREQ:12 H; 5 MILLIGRAM TWICE PER DAY
     Route: 048
     Dates: start: 20230809, end: 20231018
  52. CLOBETASOL [Concomitant]
     Active Substance: CLOBETASOL
     Indication: Vitamin D deficiency
     Dosage: 1.00 OTHER APPLICATION TWICE PER DAY
     Route: 061
     Dates: start: 20230809, end: 20230816
  53. CLOBETASOL [Concomitant]
     Active Substance: CLOBETASOL
     Indication: Rash
     Dosage: 1.00 OTHER APPLICATION DAILY
     Route: 061
     Dates: start: 20230817, end: 20230824
  54. TIN FLUORIDE [Concomitant]
     Dosage: 45 ML WEEKLY (15.00 ML 3 TIMES PER DAY, OROMUCOSAL USE)
     Route: 048
  55. NEBIVOLOL [Concomitant]
     Active Substance: NEBIVOLOL
     Indication: Atrial fibrillation
     Dosage: 2.5 MG, QD
     Dates: start: 20230519
  56. LASIX [Concomitant]
     Active Substance: FUROSEMIDE
     Indication: Fluid retention
     Dosage: 40 MILLIGRAM, QD
     Route: 048
     Dates: start: 20230714, end: 20250718
  57. LASIX [Concomitant]
     Active Substance: FUROSEMIDE
     Dosage: 20 MILLIGRAM, QD
     Route: 048
     Dates: start: 20230803, end: 20250813
  58. LASIX [Concomitant]
     Active Substance: FUROSEMIDE
     Dosage: 40 MILLIGRAM, QD
     Route: 048
     Dates: start: 20230803, end: 20250813
  59. FILGRASTIM [Concomitant]
     Active Substance: FILGRASTIM
     Indication: Neutropenia
     Dosage: 30.00 OTHER MIO E
     Route: 058
     Dates: start: 20230726, end: 20230728
  60. PANTOPRAZOLE SODIUM [Concomitant]
     Active Substance: PANTOPRAZOLE SODIUM
     Indication: Dyspepsia
     Dosage: 40 MG, QD
     Route: 048
     Dates: start: 20230513
  61. TERBINAFINE HYDROCHLORIDE [Concomitant]
     Active Substance: TERBINAFINE HYDROCHLORIDE
     Indication: Body tinea
     Dosage: 250 MILLIGRAM
     Route: 048
     Dates: start: 20230516, end: 20230623
  62. PROTHIPENDYL HYDROCHLORIDE [Concomitant]
     Active Substance: PROTHIPENDYL HYDROCHLORIDE
     Indication: Insomnia
     Dosage: 40 003 DAILY
     Dates: start: 20230721, end: 20230813

REACTIONS (2)
  - Extravasation [Recovered/Resolved]
  - Hypophysitis [Not Recovered/Not Resolved]

NARRATIVE: CASE EVENT DATE: 20230714
